FAERS Safety Report 18481752 (Version 1)
Quarter: 2020Q4

REPORT INFORMATION
  Report Type: Spontaneous
  Country: NL (occurrence: NL)
  Receive Date: 20201109
  Receipt Date: 20201109
  Transmission Date: 20210114
  Serious: Yes (Hospitalization)
  Sender: FDA-Public Use
  Company Number: NVSC2020NL290797

PATIENT
  Age: 65 Year
  Sex: Female

DRUGS (7)
  1. QUETIAPINE. [Interacting]
     Active Substance: QUETIAPINE
     Indication: ANXIETY
  2. OXAZEPAM. [Concomitant]
     Active Substance: OXAZEPAM
     Indication: ANXIETY
     Dosage: 30 MG, QD (10 MILLIGRAM, TID 3 TIMES A DAY)
     Route: 065
  3. QUETIAPINE. [Interacting]
     Active Substance: QUETIAPINE
     Indication: AGITATION
     Dosage: 375 MG, QD (DIVIDED INTO DOSES OF 100 MG AT 12 NOON, 150 MG AT 5 PM, AND 125 MG AT NIGHT).
     Route: 065
  4. SERTRALINE [Concomitant]
     Active Substance: SERTRALINE HYDROCHLORIDE
     Indication: ANXIETY
     Dosage: 200 MG, QD (200 MILLIGRAM, QD)
     Route: 065
  5. QUETIAPINE. [Suspect]
     Active Substance: QUETIAPINE
     Indication: BEHAVIOUR DISORDER
     Dosage: 50 MG (AT NIGHT)
     Route: 065
  6. OXAZEPAM. [Concomitant]
     Active Substance: OXAZEPAM
     Dosage: 40 MG, QD (10 MILLIGRAM, QID 4 TIMES A DAY)
     Route: 065
  7. CARBAMAZEPINE. [Interacting]
     Active Substance: CARBAMAZEPINE
     Indication: PARTIAL SEIZURES
     Dosage: 400 MG, BID
     Route: 065

REACTIONS (4)
  - Drug level decreased [Unknown]
  - Therapeutic response decreased [Unknown]
  - Labelled drug-drug interaction medication error [Unknown]
  - Off label use [Unknown]
